FAERS Safety Report 13331118 (Version 1)
Quarter: 2017Q1

REPORT INFORMATION
  Report Type: Spontaneous
  Country: US (occurrence: US)
  Receive Date: 20170314
  Receipt Date: 20170314
  Transmission Date: 20170428
  Serious: Yes (Death)
  Sender: FDA-Public Use
  Company Number: US-JNJFOC-20170313155

PATIENT
  Sex: Female

DRUGS (12)
  1. TRAVATAN [Concomitant]
     Active Substance: TRAVOPROST
  2. QUINAPRIL. [Concomitant]
     Active Substance: QUINAPRIL
  3. PRAVASTATIN. [Concomitant]
     Active Substance: PRAVASTATIN
  4. FENOFIBRATE. [Concomitant]
     Active Substance: FENOFIBRATE
  5. SERTRALINE [Concomitant]
     Active Substance: SERTRALINE HYDROCHLORIDE
  6. ALPHAGAN P [Concomitant]
     Active Substance: BRIMONIDINE TARTRATE
  7. ASA [Concomitant]
     Active Substance: ASPIRIN
  8. IMBRUVICA [Suspect]
     Active Substance: IBRUTINIB
     Indication: PRODUCT USED FOR UNKNOWN INDICATION
     Route: 048
     Dates: start: 20170105
  9. CLARITIN [Concomitant]
     Active Substance: LORATADINE
  10. OXYCODONE [Concomitant]
     Active Substance: OXYCODONE
  11. JANUMET [Concomitant]
     Active Substance: METFORMIN HYDROCHLORIDE\SITAGLIPTIN PHOSPHATE
  12. LYRICA [Concomitant]
     Active Substance: PREGABALIN

REACTIONS (1)
  - Death [Fatal]
